FAERS Safety Report 17186488 (Version 2)
Quarter: 2020Q1

REPORT INFORMATION
  Report Type: Spontaneous
  Country: JP (occurrence: JP)
  Receive Date: 20191220
  Receipt Date: 20200103
  Transmission Date: 20200409
  Serious: Yes (Other)
  Sender: FDA-Public Use
  Company Number: JP-RECORDATI RARE DISEASES-2078067

PATIENT
  Sex: Male

DRUGS (6)
  1. VITAMIN B6 - PYRIDOXINE HYDROCHLORIDE - 30 MG/DAY [Concomitant]
  2. CARNITINE - FOLIC ACID - 2.5 MG/DAY [Concomitant]
  3. METHIONINE - 100 MG/DAY [Concomitant]
  4. VITAMIN B12 - RIBOFLAVIN - 5 MG/DAY [Concomitant]
  5. CYSTADANE [Suspect]
     Active Substance: BETAINE
     Indication: HOMOCYSTINURIA
  6. VITAMIN B12 NOS - 0.5 MG/DAY [Concomitant]

REACTIONS (6)
  - Off label use [Unknown]
  - Overdose [Unknown]
  - Aphasia [Unknown]
  - Drug ineffective [Recovered/Resolved]
  - Aspartate aminotransferase increased [Unknown]
  - Alanine aminotransferase increased [Unknown]
